FAERS Safety Report 7505140-6 (Version None)
Quarter: 2011Q2

REPORT INFORMATION
  Report Type: 
  Country: None (occurrence: None)
  Receive Date: 20110526
  Receipt Date: 20110519
  Transmission Date: 20111010
  Serious: Yes (Life-Threatening, Hospitalization, Other)
  Sender: FDA-Public Use
  Company Number: FI-BRISTOL-MYERS SQUIBB COMPANY-15672975

PATIENT
  Age: 15 Year
  Sex: Male

DRUGS (3)
  1. BURANA [Concomitant]
     Indication: INFLUENZA
     Dates: start: 20110404, end: 20110407
  2. BURANA [Concomitant]
     Indication: PYREXIA
     Dates: start: 20110404, end: 20110407
  3. ABILIFY [Suspect]
     Dosage: 2.5MG MID FEB11;5MG/WK;INC20MG/D 14MAR11(FOR 3WK);5MG 18FEB11, 20FEB 10MG 02MAR 15MG;INC 15MAR11
     Route: 048
     Dates: start: 20110216, end: 20110407

REACTIONS (4)
  - LOSS OF CONSCIOUSNESS [None]
  - NEUROLEPTIC MALIGNANT SYNDROME [None]
  - POLLAKIURIA [None]
  - URINARY HESITATION [None]
